FAERS Safety Report 6617095-7 (Version None)
Quarter: 2010Q1

REPORT INFORMATION
  Report Type: 
  Country: None (occurrence: None)
  Receive Date: 20100307
  Receipt Date: 20100222
  Transmission Date: 20100710
  Serious: Yes (Other)
  Sender: FDA-Public Use
  Company Number: ES-BRISTOL-MYERS SQUIBB COMPANY-15003775

PATIENT
  Age: 53 Year
  Sex: Female

DRUGS (5)
  1. CYCLOPHOSPHAMIDE [Suspect]
     Indication: LYMPHOMA
  2. DOXORUBICIN [Suspect]
     Indication: LYMPHOMA
  3. VINCRISTINE SULFATE [Suspect]
     Indication: LYMPHOMA
  4. RITUXIMAB [Suspect]
     Indication: LYMPHOMA
  5. PREDNISONE [Suspect]
     Indication: LYMPHOMA

REACTIONS (1)
  - HEPATITIS B [None]
